FAERS Safety Report 6616597-7 (Version None)
Quarter: 2010Q1

REPORT INFORMATION
  Report Type: 
  Country: None (occurrence: None)
  Receive Date: 20100305
  Receipt Date: 20100301
  Transmission Date: 20100710
  Serious: Yes (Death)
  Sender: FDA-Public Use
  Company Number: PHHY2010JP11910

PATIENT
  Sex: Female

DRUGS (2)
  1. ZOLEDRONATE T29581+ [Suspect]
     Indication: BREAST CANCER
     Dosage: 4MG EVERY FOUR WEEKS
     Route: 042
     Dates: start: 20080129, end: 20090113
  2. GASPORT [Concomitant]
     Dosage: 20 MG, UNK
     Route: 048

REACTIONS (1)
  - DEATH [None]
